FAERS Safety Report 9590426 (Version 2)
Quarter: 2013Q4

REPORT INFORMATION
  Report Type: Spontaneous
  Country: US (occurrence: US)
  Receive Date: 20131003
  Receipt Date: 20131003
  Transmission Date: 20140711
  Serious: No
  Sender: FDA-Public Use
  Company Number: US-AMGEN-USASP2012074966

PATIENT
  Age: 60 Year
  Sex: Male
  Weight: 82.09 kg

DRUGS (6)
  1. ENBREL [Suspect]
     Indication: RHEUMATOID ARTHRITIS
     Dosage: 50 MG, QWK
     Route: 058
     Dates: start: 20121107, end: 20121114
  2. AMLODIPINE [Concomitant]
     Dosage: 10 MG, UNK
  3. RANITIDINE [Concomitant]
     Dosage: 150 MG, UNK
  4. FAMOTIDINE [Concomitant]
     Dosage: 10 MG, UNK
  5. TRAMADOL HCL [Concomitant]
     Dosage: 150 MG, UNK
  6. ASPIRIN [Concomitant]
     Dosage: UNK

REACTIONS (3)
  - Dysphonia [Not Recovered/Not Resolved]
  - Nasopharyngitis [Not Recovered/Not Resolved]
  - Influenza [Not Recovered/Not Resolved]
